FAERS Safety Report 11027953 (Version 2)
Quarter: 2015Q2

REPORT INFORMATION
  Report Type: Spontaneous
  Country: US (occurrence: US)
  Receive Date: 20150414
  Receipt Date: 20150525
  Transmission Date: 20150821
  Serious: No
  Sender: FDA-Public Use
  Company Number: US-JNJFOC-20110307913

PATIENT
  Age: 28 Year
  Sex: Female
  Weight: 64.41 kg

DRUGS (3)
  1. NEXT CHOICE [Concomitant]
     Active Substance: LEVONORGESTREL
     Indication: HIGH RISK SEXUAL BEHAVIOUR
     Dosage: 1 TAB WITHIN 48 HRS OF INTERCOURSE, 1 TAB AFTER 12 HRS
     Route: 048
     Dates: start: 20110301, end: 20110301
  2. TRINESSA [Suspect]
     Active Substance: ETHINYL ESTRADIOL\NORGESTIMATE
     Indication: CONTRACEPTION
     Route: 048
     Dates: start: 20110306
  3. NEXT CHOICE [Concomitant]
     Active Substance: LEVONORGESTREL
     Indication: HIGH RISK SEXUAL BEHAVIOUR
     Dosage: 1 TAB WITHIN 48 HRS OF INTERCOURSE, 1 TAB AFTER 12 HRS
     Route: 048
     Dates: start: 20110224, end: 20110224

REACTIONS (1)
  - Dysuria [Not Recovered/Not Resolved]

NARRATIVE: CASE EVENT DATE: 20110306
